FAERS Safety Report 19258392 (Version 1)
Quarter: 2021Q2

REPORT INFORMATION
  Report Type: Spontaneous
  Country: CH (occurrence: CH)
  Receive Date: 20210514
  Receipt Date: 20210514
  Transmission Date: 20210717
  Serious: Yes (Death)
  Sender: FDA-Public Use
  Company Number: CH-ROCHE-2829884

PATIENT
  Age: 82 Year
  Sex: Female

DRUGS (15)
  1. AMOXICILLINE/ACIDE CLAVULANIQUE [Concomitant]
     Active Substance: AMOXICILLIN\CLAVULANIC ACID
     Dates: start: 20210411, end: 20210412
  2. MACROGOL [Concomitant]
     Active Substance: POLYETHYLENE GLYCOLS
     Dates: start: 20210415, end: 20210417
  3. SORBITOL. [Concomitant]
     Active Substance: SORBITOL
     Dates: start: 20210415, end: 20210419
  4. METOPROLOL. [Concomitant]
     Active Substance: METOPROLOL
     Dates: start: 20210412, end: 20210419
  5. AMLODIPINE;OLMESARTAN [Concomitant]
     Active Substance: AMLODIPINE\OLMESARTAN
     Dates: start: 20210412, end: 20210419
  6. TOCILIZUMAB. [Suspect]
     Active Substance: TOCILIZUMAB
     Indication: PRODUCT USED FOR UNKNOWN INDICATION
     Route: 041
     Dates: start: 20210413
  7. DEXAMETHASONE. [Suspect]
     Active Substance: DEXAMETHASONE
     Indication: PRODUCT USED FOR UNKNOWN INDICATION
     Route: 065
     Dates: start: 20210411, end: 20210419
  8. ENOXAPARINE SODIQUE [Concomitant]
     Active Substance: ENOXAPARIN SODIUM
     Dates: start: 20210411, end: 20210419
  9. PICOSULFATE [Concomitant]
     Active Substance: SODIUM PICOSULFATE
     Dates: start: 20210416, end: 20210419
  10. ESOMEPRAZOLE. [Concomitant]
     Active Substance: ESOMEPRAZOLE MAGNESIUM
     Dates: start: 20210416, end: 20210419
  11. CALCIUM VITAMINE D3 [Concomitant]
     Active Substance: CALCIUM\CHOLECALCIFEROL
     Dates: start: 20210412, end: 20210419
  12. ZOLPIDEM [Concomitant]
     Active Substance: ZOLPIDEM TARTRATE
     Dates: start: 20210412, end: 20210414
  13. LORAZEPAM. [Concomitant]
     Active Substance: LORAZEPAM
     Dates: start: 20210416, end: 20210424
  14. TRAMADOL. [Concomitant]
     Active Substance: TRAMADOL
     Dates: start: 20210411, end: 20210419
  15. TOCILIZUMAB. [Suspect]
     Active Substance: TOCILIZUMAB
     Route: 041
     Dates: start: 20210414

REACTIONS (2)
  - Pneumoperitoneum [Fatal]
  - Diverticulum [Fatal]

NARRATIVE: CASE EVENT DATE: 20210419
